FAERS Safety Report 5285197-6 (Version None)
Quarter: 2007Q1

REPORT INFORMATION
  Report Type: 
  Country: None (occurrence: None)
  Receive Date: 20061229
  Receipt Date: 20060920
  Transmission Date: 20070707
  Serious: Yes (Other)
  Sender: FDA-Public Use
  Company Number: 2006UW18340

PATIENT
  Age: 68 Year
  Sex: Female
  Weight: 63.409 kg

DRUGS (8)
  1. CRESTOR [Suspect]
     Indication: BLOOD CHOLESTEROL INCREASED
     Dosage: 5 MG PO
     Route: 048
     Dates: start: 20060801
  2. COUMADIN [Concomitant]
  3. ACEON [Concomitant]
  4. COREG [Concomitant]
  5. CALCIUM [Concomitant]
  6. LANOXIN [Concomitant]
  7. VITAMIN CAP [Concomitant]
  8. NITROGLYCERIN [Concomitant]

REACTIONS (3)
  - ABDOMINAL PAIN [None]
  - NAUSEA [None]
  - SKIN DISORDER [None]
